FAERS Safety Report 12582488 (Version 1)
Quarter: 2016Q3

REPORT INFORMATION
  Report Type: Spontaneous
  Country: US (occurrence: None)
  Receive Date: 20160721
  Receipt Date: 20160721
  Transmission Date: 20161109
  Serious: No
  Sender: FDA-Public Use
  Company Number: None

PATIENT
  Age: 53 Year
  Sex: Female

DRUGS (12)
  1. SPIRIVIVA [Concomitant]
  2. ADVAIR HFA [Concomitant]
     Active Substance: FLUTICASONE PROPIONATE\SALMETEROL XINAFOATE
  3. HARVONI [Suspect]
     Active Substance: LEDIPASVIR\SOFOSBUVIR
     Indication: CHRONIC OBSTRUCTIVE PULMONARY DISEASE
     Dosage: 400/90 QD ORAL
     Route: 048
     Dates: start: 20160630, end: 20160720
  4. HARVONI [Suspect]
     Active Substance: LEDIPASVIR\SOFOSBUVIR
     Indication: FIBROMYALGIA
     Dosage: 400/90 QD ORAL
     Route: 048
     Dates: start: 20160630, end: 20160720
  5. HARVONI [Suspect]
     Active Substance: LEDIPASVIR\SOFOSBUVIR
     Indication: GASTROOESOPHAGEAL REFLUX DISEASE
     Dosage: 400/90 QD ORAL
     Route: 048
     Dates: start: 20160630, end: 20160720
  6. HARVONI [Suspect]
     Active Substance: LEDIPASVIR\SOFOSBUVIR
     Indication: POST-TRAUMATIC STRESS DISORDER
     Dosage: 400/90 QD ORAL
     Route: 048
     Dates: start: 20160630, end: 20160720
  7. HARVONI [Suspect]
     Active Substance: LEDIPASVIR\SOFOSBUVIR
     Indication: CHRONIC HEPATITIS C
     Dosage: 400/90 QD ORAL
     Route: 048
     Dates: start: 20160630, end: 20160720
  8. HARVONI [Suspect]
     Active Substance: LEDIPASVIR\SOFOSBUVIR
     Indication: RESTLESS LEGS SYNDROME
     Dosage: 400/90 QD ORAL
     Route: 048
     Dates: start: 20160630, end: 20160720
  9. ALBUTEROL. [Concomitant]
     Active Substance: ALBUTEROL
  10. DEXILANT [Concomitant]
     Active Substance: DEXLANSOPRAZOLE
  11. CYMBALTA [Concomitant]
     Active Substance: DULOXETINE HYDROCHLORIDE
  12. CLONAZEPAM. [Concomitant]
     Active Substance: CLONAZEPAM

REACTIONS (2)
  - Rash pruritic [None]
  - Rash [None]

NARRATIVE: CASE EVENT DATE: 20160720
